FAERS Safety Report 7459574-9 (Version None)
Quarter: 2011Q2

REPORT INFORMATION
  Report Type: 
  Country: None (occurrence: None)
  Receive Date: 20110504
  Receipt Date: 20110504
  Transmission Date: 20111010
  Serious: Yes (Hospitalization)
  Sender: FDA-Public Use
  Company Number: None

PATIENT
  Sex: Female
  Weight: 93 kg

DRUGS (1)
  1. TEMOZOLOMIDE [Suspect]
     Dosage: 1740MG
     Dates: end: 20110430

REACTIONS (2)
  - DEEP VEIN THROMBOSIS [None]
  - COLITIS [None]
